FAERS Safety Report 16073178 (Version 1)
Quarter: 2019Q1

REPORT INFORMATION
  Report Type: Report from Study
  Country: None (occurrence: US)
  Receive Date: 20190314
  Receipt Date: 20190314
  Transmission Date: 20190418
  Serious: Yes (Other)
  Sender: FDA-Public Use
  Company Number: US-ABBVIE-19S-163-2697776-00

PATIENT
  Age: 55 Year
  Sex: Male

DRUGS (1)
  1. ANDROGEL [Suspect]
     Active Substance: TESTOSTERONE
     Indication: PRODUCT USED FOR UNKNOWN INDICATION
     Route: 061

REACTIONS (10)
  - Surgery [Unknown]
  - Adrenal insufficiency [Unknown]
  - Muscle spasms [Unknown]
  - Lipids increased [Unknown]
  - Benign neoplasm of skin [Unknown]
  - Essential hypertension [Unknown]
  - Hypopituitarism [Unknown]
  - Neoplasm [Unknown]
  - Adenoma benign [Unknown]
  - Hypogonadism [Unknown]

NARRATIVE: CASE EVENT DATE: 20080306
